FAERS Safety Report 11009631 (Version 1)
Quarter: 2015Q2

REPORT INFORMATION
  Report Type: Spontaneous
  Country: US (occurrence: US)
  Receive Date: 20150410
  Receipt Date: 20150410
  Transmission Date: 20150821
  Serious: No
  Sender: FDA-Public Use
  Company Number: US-BAUSCH-SYM-2014-20523

PATIENT
  Sex: Male
  Weight: 98.06 kg

DRUGS (16)
  1. NITROGLYCERIN 0.4 MG/HR [Suspect]
     Active Substance: NITROGLYCERIN
     Indication: CARDIAC DISORDER
     Route: 062
     Dates: start: 2013
  2. HUMALOG INSULIN PUMP [Concomitant]
     Indication: DIABETES MELLITUS
     Dosage: 1.75 UNITS PER HR
     Dates: start: 2009
  3. PROTECTA VISION CVS BRAND [Concomitant]
     Indication: ANTIOXIDANT THERAPY
  4. MELOXICAM. [Concomitant]
     Active Substance: MELOXICAM
     Indication: ARTHRITIS
     Route: 048
  5. SIMVASTATIN. [Concomitant]
     Active Substance: SIMVASTATIN
     Indication: CARDIAC DISORDER
     Route: 048
  6. HYDROCODONE/ACETAMINOPHEN [Concomitant]
     Active Substance: ACETAMINOPHEN\HYDROCODONE
     Indication: ARTHRITIS
     Route: 048
     Dates: start: 2013
  7. GLUCOSAMIN /CHONDROITIN [Concomitant]
     Indication: ARTHRITIS
     Route: 048
  8. EDARBI [Concomitant]
     Active Substance: AZILSARTAN KAMEDOXOMIL
     Indication: BLOOD PRESSURE
     Route: 048
  9. FUROSEMIDE. [Concomitant]
     Active Substance: FUROSEMIDE
     Indication: CARDIAC DISORDER
     Route: 048
     Dates: start: 19980101
  10. JANUMET XR [Concomitant]
     Active Substance: METFORMIN HYDROCHLORIDE\SITAGLIPTIN PHOSPHATE
     Indication: DIABETES MELLITUS
     Dosage: 500/1000MG
     Route: 048
     Dates: start: 2012
  11. OMEPROZOLE [Concomitant]
     Indication: ABDOMINAL DISCOMFORT
     Route: 048
  12. FELODIPINE. [Concomitant]
     Active Substance: FELODIPINE
     Indication: BLOOD PRESSURE
     Route: 048
  13. ALPHALIPOIC ACID SUNDOWN BRAND [Concomitant]
     Indication: CARDIAC DISORDER
     Route: 048
  14. CARVEDILOL. [Concomitant]
     Active Substance: CARVEDILOL
     Indication: CARDIAC DISORDER
     Route: 048
  15. BABY ASPIRIN [Concomitant]
     Active Substance: ASPIRIN
     Indication: CARDIAC DISORDER
     Route: 048
     Dates: start: 1998
  16. CYCLOBENZAPRINE [Concomitant]
     Active Substance: CYCLOBENZAPRINE
     Indication: ARTHRITIS
     Route: 048

REACTIONS (2)
  - Pruritus [Not Recovered/Not Resolved]
  - Rash erythematous [Not Recovered/Not Resolved]

NARRATIVE: CASE EVENT DATE: 2014
